FAERS Safety Report 15717759 (Version 1)
Quarter: 2018Q4

REPORT INFORMATION
  Report Type: Spontaneous
  Country: US (occurrence: US)
  Receive Date: 20181213
  Receipt Date: 20181213
  Transmission Date: 20190205
  Serious: Yes (Hospitalization, Other)
  Sender: FDA-Public Use
  Company Number: US-DENTSPLY-2018SCDP000527

PATIENT
  Age: 11 Year
  Sex: Female
  Weight: 55.6 kg

DRUGS (1)
  1. MEPIVACAINE HCL [Suspect]
     Active Substance: MEPIVACAINE\MEPIVACAINE HYDROCHLORIDE
     Indication: LOCAL ANAESTHESIA
     Dosage: 54 MG, SINGLE-DOSE AMPULE

REACTIONS (14)
  - Seizure [Unknown]
  - Somnolence [Unknown]
  - Dizziness [Unknown]
  - Generalised tonic-clonic seizure [Unknown]
  - Vomiting [Unknown]
  - Pain in extremity [Unknown]
  - Muscular weakness [Unknown]
  - Headache [Unknown]
  - Feeling abnormal [Unknown]
  - Muscle twitching [Unknown]
  - Confusional state [Unknown]
  - Toxicity to various agents [Unknown]
  - Pallor [Unknown]
  - Eye movement disorder [Unknown]
